FAERS Safety Report 14012527 (Version 1)
Quarter: 2017Q3

REPORT INFORMATION
  Report Type: Spontaneous
  Country: US (occurrence: US)
  Receive Date: 20170926
  Receipt Date: 20170926
  Transmission Date: 20171128
  Serious: No
  Sender: FDA-Public Use
  Company Number: US-BAYER-2017-182868

PATIENT
  Age: 70 Year
  Sex: Female
  Weight: 63.95 kg

DRUGS (2)
  1. MIRALAX [Suspect]
     Active Substance: POLYETHYLENE GLYCOL 3350
     Indication: COLONOSCOPY
     Dosage: 1 DF, UNK
     Route: 048
     Dates: start: 2016, end: 20170909
  2. PROZAC [Concomitant]
     Active Substance: FLUOXETINE HYDROCHLORIDE

REACTIONS (3)
  - Drug administration error [Unknown]
  - Product use in unapproved indication [None]
  - Off label use [Unknown]

NARRATIVE: CASE EVENT DATE: 20170609
